FAERS Safety Report 6507126-7 (Version None)
Quarter: 2009Q4

REPORT INFORMATION
  Report Type: 
  Country: None (occurrence: None)
  Receive Date: 20091221
  Receipt Date: 20091210
  Transmission Date: 20100525
  Serious: Yes (Hospitalization, Other)
  Sender: FDA-Public Use
  Company Number: PHEH2009US11163

PATIENT
  Sex: Female
  Weight: 56.4 kg

DRUGS (14)
  1. EXJADE [Suspect]
     Indication: IRON OVERLOAD
     Dosage: 1000 MG, QD
     Route: 048
     Dates: start: 20090515
  2. EXJADE [Suspect]
     Dosage: 500 MG, QD
     Route: 048
  3. SPIRIVA [Concomitant]
     Indication: CHRONIC OBSTRUCTIVE PULMONARY DISEASE
     Dosage: 18 MCG; ONE PUFF DAILY
  4. ADVAIR DISKUS 100/50 [Concomitant]
     Indication: CHRONIC OBSTRUCTIVE PULMONARY DISEASE
     Dosage: 250/50 ONE PUFF DAILY
  5. ALBUTEROL [Concomitant]
     Indication: CHRONIC OBSTRUCTIVE PULMONARY DISEASE
     Dosage: 17 G; ONE PUFF TWICE A DAY
  6. ASCORBIC ACID [Concomitant]
     Dosage: 500 MG, QD
     Route: 048
  7. OSCAL 500+ [Concomitant]
     Dosage: BID
     Route: 048
  8. FOLIC ACID [Concomitant]
     Dosage: 0.8 MG, QD
     Route: 048
  9. NEURONTIN [Concomitant]
     Dosage: 300 MG, BID
     Route: 048
  10. PROTONIX [Concomitant]
     Dosage: 40 MG, QD
     Route: 048
  11. BACTRIM DS [Concomitant]
     Dosage: ONCE M W F
     Route: 048
  12. ACETYLCYSTEINE [Concomitant]
     Dosage: ONE TABLET DAILY
     Route: 048
  13. PREDNISONE [Concomitant]
     Dosage: 5 MG, QD
     Route: 048
  14. VFEND [Concomitant]
     Dosage: 200 MG, QD
     Route: 048

REACTIONS (8)
  - BACTERIAL SEPSIS [None]
  - DYSPNOEA [None]
  - HYPOTENSION [None]
  - PNEUMONIA [None]
  - PRODUCTIVE COUGH [None]
  - PYREXIA [None]
  - RENAL FAILURE [None]
  - TACHYCARDIA [None]
